FAERS Safety Report 8459911-2 (Version None)
Quarter: 2012Q2

REPORT INFORMATION
  Report Type: 
  Country: None (occurrence: None)
  Receive Date: 20120622
  Receipt Date: 20120619
  Transmission Date: 20120825
  Serious: Yes (Death, Hospitalization)
  Sender: FDA-Public Use
  Company Number: PHHY2012JP041381

PATIENT
  Age: 84 Year
  Sex: Male
  Weight: 60 kg

DRUGS (4)
  1. ASPIRIN [Concomitant]
     Dosage: 100 MG,(1X AFTERBREAKFAST)
  2. GLYBURIDE [Concomitant]
     Dosage: 2.5 MG, (1X AFTER BREAKFAST)
  3. FENOFIBRATE [Concomitant]
     Indication: DYSLIPIDAEMIA
     Dosage: 2 DF, 100 MG, (2X AFTER BREAKFAST AND DINNER)
  4. VALSARTAN [Suspect]
     Dosage: 80 MG,(1X AFTER BREAKFAST)

REACTIONS (23)
  - ANAEMIA [None]
  - MYOGLOBINURIA [None]
  - OXYGEN SATURATION DECREASED [None]
  - HEPATIC STEATOSIS [None]
  - SHOCK [None]
  - RHABDOMYOLYSIS [None]
  - SPLENOMEGALY [None]
  - TAKAYASU'S ARTERITIS [None]
  - RALES [None]
  - HAEMOPTYSIS [None]
  - SYNCOPE [None]
  - C-REACTIVE PROTEIN INCREASED [None]
  - DECREASED APPETITE [None]
  - PLEURAL EFFUSION [None]
  - AORTIC ANEURYSM RUPTURE [None]
  - PYREXIA [None]
  - COUGH [None]
  - RED BLOOD CELL SEDIMENTATION RATE INCREASED [None]
  - BLOOD CREATININE INCREASED [None]
  - BLOOD CREATINE PHOSPHOKINASE INCREASED [None]
  - PNEUMONIA [None]
  - LUNG CONSOLIDATION [None]
  - DIARRHOEA [None]
